FAERS Safety Report 9808024 (Version 1)
Quarter: 2014Q1

REPORT INFORMATION
  Report Type: Spontaneous
  Country: US (occurrence: US)
  Receive Date: 20140110
  Receipt Date: 20140110
  Transmission Date: 20141002
  Serious: No
  Sender: FDA-Public Use
  Company Number: US-009507513-1312USA006533

PATIENT
  Sex: 0

DRUGS (1)
  1. EMEND [Suspect]
     Indication: NAUSEA
     Dosage: 125/80MG BLISTER, USE ONE PACK EVERY OTHER WEEK
     Route: 048
     Dates: start: 201206

REACTIONS (2)
  - Drug dose omission [Unknown]
  - Product packaging quantity issue [Unknown]
